FAERS Safety Report 6021448-8 (Version None)
Quarter: 2008Q4

REPORT INFORMATION
  Report Type: 
  Country: None (occurrence: None)
  Receive Date: 20081229
  Receipt Date: 20081217
  Transmission Date: 20090506
  Serious: No
  Sender: FDA-Public Use
  Company Number: TR-AVENTIS-200814368GDDC

PATIENT
  Age: 34 Year
  Sex: Female

DRUGS (2)
  1. ARAVA [Suspect]
     Indication: RHEUMATOID ARTHRITIS
     Route: 048
     Dates: start: 20060101
  2. INDOMETHACIN [Suspect]
     Indication: RHEUMATOID ARTHRITIS
     Dosage: DOSE QUANTITY: 2
     Route: 048
     Dates: start: 20020101

REACTIONS (1)
  - DRUG EXPOSURE DURING PREGNANCY [None]
